FAERS Safety Report 4441250-8 (Version None)
Quarter: 2004Q3

REPORT INFORMATION
  Report Type: 
  Country: None (occurrence: None)
  Receive Date: 20040728
  Receipt Date: 20040401
  Transmission Date: 20050211
  Serious: No
  Sender: FDA-Public Use
  Company Number: USA040463906

PATIENT
  Age: 17 Year
  Sex: Female
  Weight: 55 kg

DRUGS (2)
  1. STRATTERA [Suspect]
     Indication: ATTENTION DEFICIT/HYPERACTIVITY DISORDER
     Dosage: 60 MG IN THE MORNING
     Dates: start: 20030401
  2. DEPAKOTE [Concomitant]

REACTIONS (4)
  - APATHY [None]
  - DRUG INEFFECTIVE [None]
  - SOMNOLENCE [None]
  - WEIGHT INCREASED [None]
